FAERS Safety Report 7286341-1 (Version None)
Quarter: 2011Q1

REPORT INFORMATION
  Report Type: 
  Country: None (occurrence: None)
  Receive Date: 20110210
  Receipt Date: 20110207
  Transmission Date: 20110831
  Serious: Yes (Death)
  Sender: FDA-Public Use
  Company Number: JP-ABBOTT-11P-087-0699863-00

PATIENT
  Sex: Female

DRUGS (14)
  1. SULPHASALAZINE [Concomitant]
     Dates: start: 20041201
  2. SULPHASALAZINE [Concomitant]
     Dates: start: 20080801
  3. SULPHASALAZINE [Concomitant]
     Indication: PRODUCT USED FOR UNKNOWN INDICATION
     Dates: start: 20030201
  4. SULPHASALAZINE [Concomitant]
     Dates: start: 20070901
  5. METHOTREXATE [Concomitant]
     Route: 048
     Dates: start: 20041201
  6. METHOTREXATE [Concomitant]
     Route: 048
     Dates: start: 20070901
  7. METHOTREXATE [Concomitant]
     Route: 048
     Dates: start: 20071006
  8. SULPHASALAZINE [Concomitant]
     Dates: start: 20071001
  9. HUMIRA [Suspect]
     Indication: RHEUMATOID ARTHRITIS
     Route: 058
     Dates: start: 20090905, end: 20101015
  10. METHOTREXATE [Concomitant]
     Indication: PRODUCT USED FOR UNKNOWN INDICATION
     Route: 048
     Dates: start: 20020701
  11. FOLIC ACID [Concomitant]
     Indication: RHEUMATOID ARTHRITIS
     Route: 048
     Dates: start: 20101006
  12. METHOTREXATE [Concomitant]
     Route: 048
     Dates: start: 20060501
  13. METHOTREXATE [Concomitant]
     Route: 048
     Dates: start: 20080801
  14. SULPHASALAZINE [Concomitant]
     Dates: start: 20060501

REACTIONS (1)
  - DEATH [None]
